FAERS Safety Report 13375589 (Version 1)
Quarter: 2017Q1

REPORT INFORMATION
  Report Type: Spontaneous
  Country: NL (occurrence: NL)
  Receive Date: 20170328
  Receipt Date: 20170328
  Transmission Date: 20170429
  Serious: Yes (Life-Threatening, Other)
  Sender: FDA-Public Use
  Company Number: NL-BAXTER-2017BAX012223

PATIENT
  Age: 72 Year
  Sex: Female

DRUGS (1)
  1. METRONIDAZOL 5 MG/ML IN VIAFLO, OPLOSSING VOOR INTRAVEINEUZE INFUSIE [Suspect]
     Active Substance: METRONIDAZOLE
     Indication: PRODUCT USED FOR UNKNOWN INDICATION
     Route: 065

REACTIONS (2)
  - Toxic encephalopathy [Recovered/Resolved]
  - Anxiety [Recovered/Resolved]
